FAERS Safety Report 9525120 (Version 2)
Quarter: 2013Q4

REPORT INFORMATION
  Report Type: Spontaneous
  Country: US (occurrence: US)
  Receive Date: 20130916
  Receipt Date: 20131022
  Transmission Date: 20140711
  Serious: Yes (Other)
  Sender: FDA-Public Use
  Company Number: US-ELI_LILLY_AND_COMPANY-US201309002639

PATIENT
  Age: 16 Year
  Sex: Male

DRUGS (2)
  1. PROZAC [Suspect]
     Indication: PRODUCT USED FOR UNKNOWN INDICATION
     Dosage: 30 MG, QD
     Route: 048
     Dates: start: 200909, end: 20091121
  2. PROZAC [Suspect]
     Dosage: 20 MG, QD
     Route: 048
     Dates: start: 20090623

REACTIONS (1)
  - Homicide [Recovered/Resolved]
